FAERS Safety Report 6968015-7 (Version None)
Quarter: 2010Q3

REPORT INFORMATION
  Report Type: 
  Country: None (occurrence: None)
  Receive Date: 20100907
  Receipt Date: 20100902
  Transmission Date: 20110219
  Serious: Yes (Other)
  Sender: FDA-Public Use
  Company Number: A0879257A

PATIENT
  Sex: Female

DRUGS (3)
  1. LOVAZA [Suspect]
     Dosage: 4TAB PER DAY
     Route: 048
  2. PREVACID [Concomitant]
  3. MOTRIN [Concomitant]

REACTIONS (1)
  - HEPATIC ENZYME INCREASED [None]
